FAERS Safety Report 8841952 (Version 1)
Quarter: 2012Q4

REPORT INFORMATION
  Report Type: Spontaneous
  Country: US (occurrence: None)
  Receive Date: 20121015
  Receipt Date: 20121015
  Transmission Date: 20130627
  Serious: Yes (Life-Threatening, Hospitalization, Other)
  Sender: FDA-Public Use
  Company Number: None

PATIENT
  Age: 31 Year
  Sex: Female
  Weight: 67.13 kg

DRUGS (1)
  1. PROZAC [Suspect]
     Indication: DEPRESSION
     Route: 048
     Dates: start: 20120911

REACTIONS (3)
  - Suicidal ideation [None]
  - Soliloquy [None]
  - Violence-related symptom [None]
